FAERS Safety Report 5317545-2 (Version None)
Quarter: 2007Q2

REPORT INFORMATION
  Report Type: 
  Country: None (occurrence: None)
  Receive Date: 20070507
  Receipt Date: 20070426
  Transmission Date: 20071010
  Serious: Yes (Other)
  Sender: FDA-Public Use
  Company Number: PHEH2007US06451

PATIENT
  Sex: Male

DRUGS (2)
  1. TOPROL-XL [Concomitant]
  2. TEKTURNA [Suspect]
     Indication: HYPERTENSION
     Dosage: 150 MG, QD
     Route: 048
     Dates: start: 20070410, end: 20070425

REACTIONS (3)
  - ATRIAL FIBRILLATION [None]
  - CARDIAC FLUTTER [None]
  - DYSPNOEA [None]
